FAERS Safety Report 8439116-1 (Version None)
Quarter: 2012Q2

REPORT INFORMATION
  Report Type: 
  Country: None (occurrence: None)
  Receive Date: 20120615
  Receipt Date: 20120531
  Transmission Date: 20120825
  Serious: Yes (Life-Threatening, Hospitalization, Other)
  Sender: FDA-Public Use
  Company Number: US-MYLANLABS-2009AC000414

PATIENT
  Age: 84 Year
  Sex: Female
  Weight: 56.7 kg

DRUGS (34)
  1. DIGOXIN [Suspect]
     Indication: HEART RATE IRREGULAR
     Route: 048
     Dates: start: 20071223, end: 20091009
  2. METAMUCIL-2 [Concomitant]
  3. METOPROLOL TARTRATE [Concomitant]
     Route: 048
  4. LEVOXYL [Concomitant]
  5. ENALAPRIL MALEATE [Concomitant]
  6. METOPROLOL SUCCINATE [Concomitant]
  7. CLINDAMYCIN [Concomitant]
  8. PROPOXYPHENE HCL [Concomitant]
  9. PREVACID [Concomitant]
  10. SYNTHROID [Concomitant]
  11. CALCIUM MAGNESIUM [Concomitant]
  12. AZITHROMYCIN [Concomitant]
  13. LEVOTHROID [Concomitant]
  14. CIPROFLAXACIN [Concomitant]
  15. ENALAPRIL MALEATE [Concomitant]
  16. OMEPRAZOLE [Concomitant]
  17. CARDIZEM CD [Concomitant]
  18. LASIX [Concomitant]
  19. WARFARIN SODIUM [Concomitant]
     Route: 048
  20. DILTIAZEM [Concomitant]
  21. LOVAZA [Concomitant]
  22. WARFARIN SODIUM [Concomitant]
  23. GLIPIZIDE [Concomitant]
  24. POTASSIUM CHLORIDE [Concomitant]
  25. CARTIA XT [Concomitant]
  26. PREVACID [Concomitant]
  27. TOPROL-XL [Concomitant]
  28. GLYCOLAX [Concomitant]
  29. BONIVA [Concomitant]
  30. CENTRUM PLUS [Concomitant]
  31. KLOR-CON [Concomitant]
  32. ASPIRIN [Concomitant]
  33. POTASSIUM CHLORIDE [Concomitant]
  34. XOPENEX [Concomitant]

REACTIONS (82)
  - ABASIA [None]
  - MUSCULOSKELETAL PAIN [None]
  - CONFUSIONAL STATE [None]
  - PLEURAL EFFUSION [None]
  - BRONCHITIS [None]
  - CHEST X-RAY ABNORMAL [None]
  - COUGH [None]
  - DRUG LEVEL ABOVE THERAPEUTIC [None]
  - GOITRE [None]
  - EXERCISE TOLERANCE DECREASED [None]
  - HYPERGLYCAEMIA [None]
  - ARTHRALGIA [None]
  - URGE INCONTINENCE [None]
  - CARDIAC FAILURE CONGESTIVE [None]
  - CORONARY ARTERY DISEASE [None]
  - HYPOTHYROIDISM [None]
  - CARDIAC VALVE DISEASE [None]
  - BALANCE DISORDER [None]
  - CONTUSION [None]
  - LEUKOCYTOSIS [None]
  - PULMONARY CONGESTION [None]
  - DYSPEPSIA [None]
  - MICTURITION URGENCY [None]
  - TRANSIENT ISCHAEMIC ATTACK [None]
  - ARTERIOSCLEROSIS CORONARY ARTERY [None]
  - GASTROOESOPHAGEAL REFLUX DISEASE [None]
  - RENAL FAILURE [None]
  - ABDOMINAL PAIN [None]
  - COAGULOPATHY [None]
  - DIARRHOEA [None]
  - ECHOCARDIOGRAM ABNORMAL [None]
  - GAIT DISTURBANCE [None]
  - CARDIAC MURMUR [None]
  - HYPOTENSION [None]
  - PNEUMONIA [None]
  - TOXICITY TO VARIOUS AGENTS [None]
  - AORTIC THROMBOSIS [None]
  - COMPUTERISED TOMOGRAM ABNORMAL [None]
  - POLLAKIURIA [None]
  - KYPHOSIS [None]
  - HEART RATE DECREASED [None]
  - ASTHENIA [None]
  - DYSPNOEA [None]
  - ECONOMIC PROBLEM [None]
  - OSTEOARTHRITIS [None]
  - ATRIAL FIBRILLATION [None]
  - HYPERTENSION [None]
  - MENTAL STATUS CHANGES [None]
  - CHEST PAIN [None]
  - CEREBRAL ATROPHY [None]
  - HYPOXIA [None]
  - DECREASED APPETITE [None]
  - PYREXIA [None]
  - OEDEMA PERIPHERAL [None]
  - VARICOSE VEIN [None]
  - UPPER RESPIRATORY TRACT INFECTION [None]
  - PALPITATIONS [None]
  - DIVERTICULUM [None]
  - THYROID DISORDER [None]
  - ELECTROCARDIOGRAM ABNORMAL [None]
  - MEMORY IMPAIRMENT [None]
  - PYURIA [None]
  - TREMOR [None]
  - INJURY [None]
  - ILL-DEFINED DISORDER [None]
  - MITRAL VALVE INCOMPETENCE [None]
  - DELUSION [None]
  - BREATH SOUNDS ABNORMAL [None]
  - DYSLIPIDAEMIA [None]
  - CARDIOVERSION [None]
  - FATIGUE [None]
  - LETHARGY [None]
  - NUCLEAR MAGNETIC RESONANCE IMAGING ABNORMAL [None]
  - RHONCHI [None]
  - PULMONARY HYPERTENSION [None]
  - CATARACT OPERATION [None]
  - DEMENTIA [None]
  - RESPIRATORY FAILURE [None]
  - ATELECTASIS [None]
  - CARDIOMEGALY [None]
  - HYPERTHYROIDISM [None]
  - RALES [None]
